FAERS Safety Report 9130224 (Version 2)
Quarter: 2013Q1

REPORT INFORMATION
  Report Type: Spontaneous
  Country: IT (occurrence: IT)
  Receive Date: 20130228
  Receipt Date: 20130308
  Transmission Date: 20140127
  Serious: Yes (Other)
  Sender: FDA-Public Use
  Company Number: IT-ABBOTT-13P-083-1053569-00

PATIENT
  Age: 73 Year
  Sex: Female

DRUGS (4)
  1. DEPAKIN [Suspect]
     Indication: BIPOLAR DISORDER
     Route: 048
     Dates: start: 20120311, end: 20120321
  2. EN [Suspect]
     Indication: BIPOLAR DISORDER
     Route: 048
     Dates: start: 20120311, end: 20120321
  3. INVEGA [Concomitant]
     Indication: PRODUCT USED FOR UNKNOWN INDICATION
  4. ZYPREXA [Concomitant]
     Indication: PRODUCT USED FOR UNKNOWN INDICATION

REACTIONS (3)
  - Atonic seizures [Unknown]
  - Balance disorder [Unknown]
  - Fall [Unknown]
